FAERS Safety Report 10057907 (Version 1)
Quarter: 2014Q2

REPORT INFORMATION
  Report Type: Spontaneous
  Country: US (occurrence: US)
  Receive Date: 20140404
  Receipt Date: 20140404
  Transmission Date: 20141212
  Serious: Yes (Hospitalization, Other)
  Sender: FDA-Public Use
  Company Number: US-UCBSA-116480

PATIENT
  Age: 65 Year
  Sex: Female
  Weight: 45.8 kg

DRUGS (4)
  1. KEPPRA [Suspect]
     Indication: CONVULSION
     Dosage: UNKNOWN DOSE
     Dates: start: 201207, end: 2012
  2. KEPPRA [Suspect]
     Indication: CONVULSION
     Dates: start: 2013
  3. NEUPRO [Suspect]
     Indication: PARKINSONISM
     Dosage: 1MG DAILY
     Dates: start: 20140317
  4. OXCARBAZEPINE [Concomitant]
     Indication: CONVULSION
     Dosage: 150MG IN THE MORNING AND 225MG IN THE NIGHT

REACTIONS (5)
  - Parkinsonism [Not Recovered/Not Resolved]
  - Fall [Unknown]
  - Subdural haematoma [Unknown]
  - Urinary tract infection [Unknown]
  - Hypersensitivity [Recovered/Resolved]
